FAERS Safety Report 19715857 (Version 5)
Quarter: 2022Q2

REPORT INFORMATION
  Report Type: Other
  Country: US (occurrence: None)
  Receive Date: 20210818
  Receipt Date: 20220529
  Transmission Date: 20220721
  Serious: No
  Sender: FDA-Public Use
  Company Number: US-ROCHE-2888655

PATIENT
  Age: 50 Year
  Sex: Female

DRUGS (1)
  1. OCREVUS [Suspect]
     Active Substance: OCRELIZUMAB
     Indication: Relapsing-remitting multiple sclerosis
     Dosage: DATE OF TREATMENT- 12/JUL/2021, 07/DEC/2021;04/JUN/2020,15/NOV/2021 REFILLS:2
     Route: 042
     Dates: start: 201710

REACTIONS (5)
  - COVID-19 [Recovered/Resolved]
  - B-lymphocyte count decreased [Unknown]
  - Nasopharyngitis [Not Recovered/Not Resolved]
  - CD19 lymphocytes decreased [Unknown]
  - B-lymphocyte count decreased [Unknown]

NARRATIVE: CASE EVENT DATE: 20210801
